FAERS Safety Report 15170224 (Version 1)
Quarter: 2018Q3

REPORT INFORMATION
  Report Type: Spontaneous
  Country: US (occurrence: US)
  Receive Date: 20180622
  Receipt Date: 20180622
  Transmission Date: 20181010
  Serious: No
  Sender: FDA-Public Use
  Company Number: None

PATIENT
  Age: 65 Year
  Sex: Female

DRUGS (1)
  1. TYMLOS [Suspect]
     Active Substance: ABALOPARATIDE
     Dosage: ?          OTHER STRENGTH:3120/1.56 UG/ML;?

REACTIONS (2)
  - No adverse event [None]
  - Drug dose omission [None]

NARRATIVE: CASE EVENT DATE: 20180621
